FAERS Safety Report 24453721 (Version 2)
Quarter: 2024Q4

REPORT INFORMATION
  Report Type: Report from Study
  Country: US (occurrence: US)
  Receive Date: 20241017
  Receipt Date: 20241018
  Transmission Date: 20250115
  Serious: No
  Sender: ROCHE
  Company Number: US-ROCHE-3361376

PATIENT
  Age: 64 Year
  Sex: Male
  Weight: 108.86 kg

DRUGS (4)
  1. RITUXAN [Suspect]
     Active Substance: RITUXIMAB
     Indication: Pemphigus
     Dosage: 10 MG/ML; 1000 MG ON DAY 1 AND 15, EVERY 6 MONTHS
     Route: 042
     Dates: start: 202306
  2. SODIUM CHLORIDE [Concomitant]
     Active Substance: SODIUM CHLORIDE
  3. LOSARTAN [Concomitant]
     Active Substance: LOSARTAN
  4. CALCIUM CARBONATE\MAGNESIUM CARBONATE [Concomitant]
     Active Substance: CALCIUM CARBONATE\MAGNESIUM CARBONATE

REACTIONS (4)
  - Off label use [Unknown]
  - Glossodynia [Unknown]
  - Throat irritation [Unknown]
  - Cough [Unknown]
